FAERS Safety Report 8977093 (Version 2)
Quarter: 2013Q1

REPORT INFORMATION
  Report Type: Report from Study
  Country: CA (occurrence: CA)
  Receive Date: 20121219
  Receipt Date: 20130311
  Transmission Date: 20140127
  Serious: Yes (Other)
  Sender: FDA-Public Use
  Company Number: CA-CELGENEUS-028-C5013-12121286

PATIENT
  Age: 86 Year
  Sex: Female

DRUGS (8)
  1. CC-5013 [Suspect]
     Indication: PLASMA CELL MYELOMA
     Dosage: 10 MILLIGRAM
     Route: 048
     Dates: start: 20091013, end: 20110815
  2. DEXAMETHASONE [Suspect]
     Indication: PLASMA CELL MYELOMA
     Dosage: 20 MILLIGRAM
     Route: 065
     Dates: start: 20091013, end: 20110816
  3. CELEXA [Concomitant]
     Indication: PRODUCT USED FOR UNKNOWN INDICATION
     Route: 065
     Dates: start: 201109
  4. CELEXA [Concomitant]
     Dosage: 20 MILLIGRAM
     Route: 048
     Dates: start: 20120710
  5. FERROUS GLUCONATE [Concomitant]
     Indication: HAEMOGLOBIN DECREASED
     Dosage: 300 MILLIGRAM
     Route: 048
     Dates: start: 20120406, end: 20120815
  6. PANTOPRAZOLE [Concomitant]
     Indication: GASTRITIS EROSIVE
     Dosage: 40 MILLIGRAM
     Route: 048
     Dates: start: 20120405, end: 20120815
  7. HCTZ [Concomitant]
     Indication: HYPERTENSION
     Dosage: 25 MILLIGRAM
     Route: 048
     Dates: start: 20120710
  8. ANTIBIOTICS [Concomitant]
     Indication: PRODUCT USED FOR UNKNOWN INDICATION
     Route: 065

REACTIONS (1)
  - Squamous cell carcinoma of skin [Recovered/Resolved]
